FAERS Safety Report 16682189 (Version 1)
Quarter: 2019Q3

REPORT INFORMATION
  Report Type: Spontaneous
  Country: DE (occurrence: DE)
  Receive Date: 20190808
  Receipt Date: 20190808
  Transmission Date: 20191004
  Serious: Yes (Hospitalization, Other)
  Sender: FDA-Public Use
  Company Number: DE-TORRENT-00015059

PATIENT
  Age: 12 Year
  Sex: Female
  Weight: 40 kg

DRUGS (3)
  1. ORFIRIL LONG [Concomitant]
     Active Substance: VALPROIC ACID
     Indication: PRODUCT USED FOR UNKNOWN INDICATION
     Dosage: 1X 300 MG
  2. LAMOTRIGIN [Suspect]
     Active Substance: LAMOTRIGINE
     Indication: EPILEPSY
     Dosage: 25 MG
     Dates: start: 20190627, end: 20190710
  3. VALPROAT CHRONO WINTHROP [Concomitant]
     Active Substance: VALPROATE SODIUM
     Indication: EPILEPSY
     Dosage: 1X 500 MG

REACTIONS (10)
  - Pyrexia [Not Recovered/Not Resolved]
  - General physical health deterioration [Not Recovered/Not Resolved]
  - Hypotension [Not Recovered/Not Resolved]
  - Pruritus [Not Recovered/Not Resolved]
  - Enanthema [Not Recovered/Not Resolved]
  - Rash maculo-papular [Not Recovered/Not Resolved]
  - Blood immunoglobulin E increased [Unknown]
  - Stevens-Johnson syndrome [Not Recovered/Not Resolved]
  - Eosinophilia [Not Recovered/Not Resolved]
  - Oropharyngeal pain [Unknown]

NARRATIVE: CASE EVENT DATE: 201907
